FAERS Safety Report 17439429 (Version 1)
Quarter: 2020Q1

REPORT INFORMATION
  Report Type: Report from Study
  Country: US (occurrence: US)
  Receive Date: 20200220
  Receipt Date: 20200220
  Transmission Date: 20200409
  Serious: Yes (Other)
  Sender: FDA-Public Use
  Company Number: US-ASTELLAS-2019US024999

PATIENT
  Age: 41 Year
  Sex: Male

DRUGS (1)
  1. ISAVUCONAZOLE [Suspect]
     Active Substance: ISAVUCONAZOLE
     Indication: LUNG NEOPLASM MALIGNANT
     Dosage: 372 MG (186 MG TWO CAPSULES), ONCE DAILY
     Route: 048

REACTIONS (4)
  - Spleen disorder [Unknown]
  - Gastric disorder [Unknown]
  - Product use in unapproved indication [Unknown]
  - Product availability issue [Unknown]

NARRATIVE: CASE EVENT DATE: 20200212
